FAERS Safety Report 24279875 (Version 2)
Quarter: 2024Q3

REPORT INFORMATION
  Report Type: Spontaneous
  Country: US (occurrence: US)
  Receive Date: 20240904
  Receipt Date: 20240915
  Transmission Date: 20241016
  Serious: Yes (Hospitalization, Other)
  Sender: AUROBINDO
  Company Number: US-MLMSERVICE-20240815-PI163802-00030-1

PATIENT
  Age: 38 Year
  Sex: Female

DRUGS (2)
  1. IBUPROFEN [Suspect]
     Active Substance: IBUPROFEN
     Indication: Analgesic intervention supportive therapy
     Dosage: 800 MILLIGRAM, FOUR TIMES/DAY (ON POSTOPERATIVE DAY 1)
     Route: 048
  2. KETOROLAC TROMETHAMINE [Suspect]
     Active Substance: KETOROLAC TROMETHAMINE
     Indication: Analgesic intervention supportive therapy
     Dosage: 15 MILLIGRAM, ONCE A DAY
     Route: 042

REACTIONS (1)
  - Acute kidney injury [Recovering/Resolving]
